FAERS Safety Report 22299672 (Version 1)
Quarter: 2023Q2

REPORT INFORMATION
  Report Type: Spontaneous
  Country: US (occurrence: None)
  Receive Date: 20230508
  Receipt Date: 20230508
  Transmission Date: 20230722
  Serious: Yes (Life-Threatening, Disabling)
  Sender: FDA-Public Use
  Company Number: None

PATIENT
  Age: 38 Year
  Sex: Male
  Weight: 60.75 kg

DRUGS (1)
  1. CIPROFLOXACIN [Suspect]
     Active Substance: CIPROFLOXACIN
     Indication: Epididymitis
     Dosage: FREQUENCY : TWICE A DAY;?
     Route: 048
     Dates: start: 20220605, end: 20220620

REACTIONS (8)
  - Chest pain [None]
  - Dizziness [None]
  - Headache [None]
  - Abdominal pain [None]
  - Product complaint [None]
  - Internal haemorrhage [None]
  - Gait disturbance [None]
  - Fear [None]

NARRATIVE: CASE EVENT DATE: 20220715
